FAERS Safety Report 9255020 (Version 2)
Quarter: 2013Q2

REPORT INFORMATION
  Report Type: Report from Study
  Country: US (occurrence: US)
  Receive Date: 20130425
  Receipt Date: 20130529
  Transmission Date: 20140414
  Serious: Yes (Hospitalization)
  Sender: FDA-Public Use
  Company Number: US-JNJFOC-20130409610

PATIENT
  Age: 51 Year
  Sex: Male
  Weight: 108.86 kg

DRUGS (3)
  1. REMICADE [Suspect]
     Indication: COLITIS ULCERATIVE
     Dosage: 0, 2 WEEKS AND 6 WEEKS THEN EVERY 8??WEEKS
     Route: 042
     Dates: start: 20121208
  2. REMICADE [Suspect]
     Indication: COLITIS ULCERATIVE
     Dosage: SECOND DOSE IN DEC-2012
     Route: 042
     Dates: start: 201212
  3. ASACOL [Concomitant]
     Indication: COLITIS ULCERATIVE
     Route: 065

REACTIONS (3)
  - Acute febrile neutrophilic dermatosis [Recovered/Resolved]
  - Renal failure acute [Recovering/Resolving]
  - Hepatic failure [Recovering/Resolving]
